FAERS Safety Report 9349283 (Version 3)
Quarter: 2014Q1

REPORT INFORMATION
  Report Type: Spontaneous
  Country: US (occurrence: US)
  Receive Date: 20130614
  Receipt Date: 20140227
  Transmission Date: 20141002
  Serious: Yes (Hospitalization)
  Sender: FDA-Public Use
  Company Number: US-B.I. PHARMACEUTICALS,INC./RIDGEFIELD-2013-BI-16554BP

PATIENT
  Age: 74 Year
  Sex: Male
  Weight: 82.1 kg

DRUGS (9)
  1. PRADAXA [Suspect]
     Indication: PRODUCT USED FOR UNKNOWN INDICATION
     Dosage: 300 MG
     Route: 065
     Dates: start: 20110907, end: 20120510
  2. SYMBICORT [Concomitant]
     Route: 065
  3. METOPROLOL [Concomitant]
     Route: 065
  4. FINASTERIDE [Concomitant]
     Dosage: 5 MG
     Route: 065
  5. SIMVASTATIN [Concomitant]
     Dosage: 40 MG
     Route: 065
  6. ASPIRIN [Concomitant]
     Dosage: 81 MG
     Route: 065
  7. COMBIVENT [Concomitant]
     Route: 065
  8. SPIRIVA [Concomitant]
     Dosage: 18 MCG
     Route: 065
  9. GINGKO [Concomitant]
     Dosage: 120 MG
     Route: 065

REACTIONS (1)
  - Haemoptysis [Recovered/Resolved]
